FAERS Safety Report 7413851-6 (Version None)
Quarter: 2011Q2

REPORT INFORMATION
  Report Type: 
  Country: None (occurrence: None)
  Receive Date: 20110413
  Receipt Date: 20110331
  Transmission Date: 20111010
  Serious: Yes (Death, Life-Threatening, Hospitalization)
  Sender: FDA-Public Use
  Company Number: DE-MYLANLABS-2011S1006563

PATIENT
  Age: 90 Year
  Sex: Female

DRUGS (10)
  1. DOMINAL [Suspect]
     Indication: PRODUCT USED FOR UNKNOWN INDICATION
     Route: 048
     Dates: start: 20100409, end: 20100411
  2. ALLOPURINOL [Concomitant]
     Indication: PRODUCT USED FOR UNKNOWN INDICATION
     Route: 048
  3. DOMINAL [Suspect]
     Route: 048
     Dates: start: 20100412, end: 20100420
  4. XIPAMID HEXAL [Concomitant]
     Indication: PRODUCT USED FOR UNKNOWN INDICATION
     Route: 048
     Dates: start: 20100409
  5. METOPROLOL TARTRATE [Suspect]
     Route: 048
     Dates: start: 20100409, end: 20100418
  6. XIPAMID HEXAL [Concomitant]
     Route: 048
     Dates: start: 20100413, end: 20100418
  7. XIPAMID HEXAL [Concomitant]
     Route: 048
     Dates: start: 20100419, end: 20100420
  8. METOPROLOL TARTRATE [Suspect]
     Indication: PRODUCT USED FOR UNKNOWN INDICATION
     Route: 048
     Dates: start: 20100419, end: 20100420
  9. JONOSTERIL /00351401/ [Concomitant]
     Indication: PRODUCT USED FOR UNKNOWN INDICATION
     Route: 042
     Dates: start: 20100410, end: 20100420
  10. METOPROLOL TARTRATE [Suspect]
     Route: 048
     Dates: end: 20100408

REACTIONS (2)
  - SUDDEN DEATH [None]
  - ELECTROCARDIOGRAM QT PROLONGED [None]
